FAERS Safety Report 7127073-X (Version None)
Quarter: 2010Q4

REPORT INFORMATION
  Report Type: 
  Country: None (occurrence: None)
  Receive Date: 20101129
  Receipt Date: 20100312
  Transmission Date: 20110411
  Serious: Yes (Other)
  Sender: FDA-Public Use
  Company Number: US-PFIZER INC-2010003901

PATIENT
  Sex: Male
  Weight: 53.515 kg

DRUGS (9)
  1. VIAGRA [Suspect]
     Indication: ERECTILE DYSFUNCTION
     Dosage: 100 MG, AS NEEDED
     Route: 048
     Dates: start: 20091201
  2. AMITRIPTYLINE [Concomitant]
     Indication: RHEUMATOID ARTHRITIS
     Dosage: UNK
  3. HYOSCYAMINE [Concomitant]
     Dosage: UNK
  4. FOLIC ACID [Concomitant]
     Indication: RHEUMATOID ARTHRITIS
     Dosage: UNK
  5. FERROUS SULFATE [Concomitant]
     Dosage: UNK
  6. METHOTREXATE [Concomitant]
     Dosage: UNK
  7. PREDNISONE [Concomitant]
     Indication: RHEUMATOID ARTHRITIS
     Dosage: UNK
  8. ETANERCEPT [Concomitant]
     Indication: RHEUMATOID ARTHRITIS
     Dosage: UNK
  9. HYDROCODONE [Concomitant]
     Indication: RHEUMATOID ARTHRITIS
     Dosage: UNK

REACTIONS (2)
  - ERECTILE DYSFUNCTION [None]
  - HEPATIC FUNCTION ABNORMAL [None]
